FAERS Safety Report 20792367 (Version 1)
Quarter: 2022Q2

REPORT INFORMATION
  Report Type: Spontaneous
  Country: CA (occurrence: CA)
  Receive Date: 20220505
  Receipt Date: 20220505
  Transmission Date: 20220721
  Serious: Yes (Other)
  Sender: FDA-Public Use
  Company Number: CA-SEATTLE GENETICS-2022SGN04198

PATIENT
  Age: 37 Year
  Sex: Female

DRUGS (4)
  1. ADCETRIS [Suspect]
     Active Substance: BRENTUXIMAB VEDOTIN
     Indication: Anaplastic large cell lymphoma T- and null-cell types refractory
     Route: 065
  2. DOXORUBICIN [Suspect]
     Active Substance: DOXORUBICIN
     Indication: Anaplastic large cell lymphoma T- and null-cell types refractory
     Route: 065
  3. CYCLOPHOSPHAMIDE [Suspect]
     Active Substance: CYCLOPHOSPHAMIDE
     Indication: Anaplastic large cell lymphoma T- and null-cell types refractory
     Route: 065
  4. PREDNISONE [Suspect]
     Active Substance: PREDNISONE
     Indication: Anaplastic large cell lymphoma T- and null-cell types refractory
     Route: 065

REACTIONS (8)
  - Cytopenia [Not Recovered/Not Resolved]
  - Encephalopathy [Recovered/Resolved]
  - Tumour lysis syndrome [Recovering/Resolving]
  - Splenomegaly [Recovering/Resolving]
  - Condition aggravated [Unknown]
  - Blood lactate dehydrogenase increased [Unknown]
  - Blood uric acid increased [Unknown]
  - Blood calcium increased [Unknown]
